FAERS Safety Report 8344965-4 (Version None)
Quarter: 2012Q2

REPORT INFORMATION
  Report Type: 
  Country: None (occurrence: None)
  Receive Date: 20120508
  Receipt Date: 20080416
  Transmission Date: 20120825
  Serious: Yes (Hospitalization)
  Sender: FDA-Public Use
  Company Number: US-TEVA-US023286

PATIENT

DRUGS (1)
  1. TRISENOX [Suspect]
     Route: 041

REACTIONS (1)
  - ABDOMINAL PAIN [None]
